FAERS Safety Report 16661963 (Version 1)
Quarter: 2019Q3

REPORT INFORMATION
  Report Type: Report from Study
  Country: US (occurrence: US)
  Receive Date: 20190802
  Receipt Date: 20190802
  Transmission Date: 20191004
  Serious: No
  Sender: FDA-Public Use
  Company Number: US-EXELIXIS-CABO-19019511

PATIENT
  Age: 56 Year
  Sex: Male
  Weight: 107.94 kg

DRUGS (1)
  1. CABOMETYX [Suspect]
     Active Substance: CABOZANTINIB S-MALATE
     Indication: RENAL CANCER
     Dosage: 60 MG, QD (AM WITHOUT FOOD)
     Dates: start: 20190228

REACTIONS (15)
  - Ascites [Unknown]
  - Thinking abnormal [Unknown]
  - Abdominal distension [Recovered/Resolved]
  - Aphasia [Unknown]
  - Dizziness [Recovered/Resolved]
  - Weight decreased [Unknown]
  - Fatigue [Not Recovered/Not Resolved]
  - Somnolence [Not Recovered/Not Resolved]
  - Diarrhoea [Unknown]
  - Flatulence [Unknown]
  - Faeces discoloured [Recovered/Resolved]
  - Ageusia [Unknown]
  - Constipation [Recovered/Resolved]
  - Incision site pain [Unknown]
  - Blood pressure increased [Recovering/Resolving]

NARRATIVE: CASE EVENT DATE: 201903
